FAERS Safety Report 6758131-7 (Version None)
Quarter: 2010Q2

REPORT INFORMATION
  Report Type: 
  Country: None (occurrence: None)
  Receive Date: 20100607
  Receipt Date: 20100504
  Transmission Date: 20101027
  Serious: No
  Sender: FDA-Public Use
  Company Number: US-JNJFOC-20100304052

PATIENT
  Sex: Male
  Weight: 68.04 kg

DRUGS (9)
  1. INVEGA SUSTENNA [Suspect]
     Indication: ANGER
     Route: 030
  2. INVEGA SUSTENNA [Suspect]
     Route: 030
  3. INVEGA SUSTENNA [Suspect]
     Route: 030
  4. INVEGA SUSTENNA [Suspect]
     Indication: IMPULSIVE BEHAVIOUR
     Route: 030
  5. INVEGA SUSTENNA [Suspect]
     Route: 030
  6. INVEGA SUSTENNA [Suspect]
     Route: 030
  7. INVEGA SUSTENNA [Suspect]
     Indication: SCHIZOPHRENIA
     Route: 030
  8. INVEGA SUSTENNA [Suspect]
     Route: 030
  9. INVEGA SUSTENNA [Suspect]
     Route: 030

REACTIONS (4)
  - AGITATION [None]
  - ANGER [None]
  - ANXIETY [None]
  - RESTLESSNESS [None]
